FAERS Safety Report 7356609-9 (Version None)
Quarter: 2011Q1

REPORT INFORMATION
  Report Type: 
  Country: None (occurrence: None)
  Receive Date: 20110316
  Receipt Date: 20110303
  Transmission Date: 20110831
  Serious: Yes (Disabling)
  Sender: FDA-Public Use
  Company Number: PHHY2011GB17140

PATIENT
  Age: 1 Month
  Sex: Male
  Weight: 5 kg

DRUGS (15)
  1. ONDANSETRON [Concomitant]
     Dosage: 1.5 MG, TID
     Route: 042
     Dates: start: 20110113
  2. CYCLOSPORINE [Concomitant]
     Dosage: 10 MG, BID (A TOTAL OF FIVE DOSES)
     Route: 042
     Dates: start: 20110119, end: 20110121
  3. IMMUNOGLOBULIN HUMAN NORMAL [Concomitant]
     Dosage: 2.5 G, TIW
     Route: 042
     Dates: start: 20110105
  4. TACROLIMUS [Concomitant]
     Dosage: 750 UG, BID
     Route: 048
     Dates: start: 20110123
  5. FLUDARA [Suspect]
     Indication: BONE MARROW CONDITIONING REGIMEN
     Dosage: 30 MG/M2, QD
     Route: 042
     Dates: start: 20110114, end: 20110118
  6. TREOSULFAN [Concomitant]
     Indication: BONE MARROW CONDITIONING REGIMEN
     Dosage: 12 MG/M2, UNK
     Route: 042
     Dates: start: 20110114, end: 20110116
  7. TREOSULFAN [Concomitant]
     Indication: OFF LABEL USE
  8. ACYCLOVIR [Concomitant]
     Dosage: 50 MG, TID
     Route: 042
     Dates: start: 20110119, end: 20110210
  9. ALLOPURINOL [Concomitant]
     Dosage: 4 MG/KG, TID
     Route: 048
     Dates: start: 20110105, end: 20110109
  10. ACYCLOVIR [Concomitant]
     Dosage: 50 MG, TID
     Route: 048
     Dates: start: 20110210
  11. AMBISOME [Concomitant]
     Dosage: 5 MG, QD
     Route: 042
     Dates: start: 20110119
  12. CLONAZEPAM [Concomitant]
     Indication: CONVULSION
     Dosage: 25 UG/KG, BID
     Dates: start: 20110113, end: 20110117
  13. COTRIM [Concomitant]
     Dosage: 60 MG, BID
     Route: 048
     Dates: start: 20101215
  14. MYCOPHENOLATE MOFETIL [Concomitant]
     Dosage: 75 MG, TID
     Route: 048
     Dates: start: 20110120
  15. CAMPATH [Concomitant]
     Indication: BONE MARROW CONDITIONING REGIMEN
     Dosage: 0.2 MG/KG, QD
     Route: 042
     Dates: start: 20110106, end: 20110108

REACTIONS (3)
  - CONVULSION [None]
  - AGITATION NEONATAL [None]
  - HYPERTONIA [None]
